FAERS Safety Report 23735666 (Version 1)
Quarter: 2024Q2

REPORT INFORMATION
  Report Type: Spontaneous
  Country: US (occurrence: None)
  Receive Date: 20240411
  Receipt Date: 20240411
  Transmission Date: 20240716
  Serious: No
  Sender: FDA-Public Use
  Company Number: None

PATIENT
  Age: 51 Year
  Sex: Male
  Weight: 101.7 kg

DRUGS (5)
  1. OXALIPLATIN [Suspect]
     Active Substance: OXALIPLATIN
     Indication: Adenocarcinoma of colon
     Dosage: OTHER FREQUENCY : 150 MG/HR;?
     Route: 042
  2. DEXAMETHASONE [Concomitant]
     Active Substance: DEXAMETHASONE
  3. dextrose 5% in water infusion 25 mL [Concomitant]
  4. granisetron injection 1 mg [Concomitant]
  5. sodium chloride 0.9% flush 10 mL [Concomitant]

REACTIONS (7)
  - Hypoaesthesia [None]
  - Grip strength decreased [None]
  - Dysuria [None]
  - Pollakiuria [None]
  - Dysuria [None]
  - Dizziness [None]
  - Feeling cold [None]

NARRATIVE: CASE EVENT DATE: 20240404
